FAERS Safety Report 8874478 (Version 2)
Quarter: 2012Q4

REPORT INFORMATION
  Report Type: 
  Country: IT (occurrence: IT)
  Receive Date: 20121031
  Receipt Date: 20121203
  Transmission Date: 20130627
  Serious: Yes (Hospitalization)
  Sender: FDA-Public Use
  Company Number: IT-009507513-1210ITA012356

PATIENT
  Age: 53 Year
  Sex: Female

DRUGS (1)
  1. FOSAVANCE [Suspect]
     Indication: OSTEOPOROSIS
     Dosage: 1 DF,( strength: 70mg/5600IU )qw
     Route: 048
     Dates: start: 20120625, end: 20120825

REACTIONS (1)
  - Pancreatitis acute [Not Recovered/Not Resolved]
